FAERS Safety Report 5097594-2 (Version None)
Quarter: 2006Q3

REPORT INFORMATION
  Report Type: 
  Country: None (occurrence: None)
  Receive Date: 20060901
  Receipt Date: 20060828
  Transmission Date: 20061208
  Serious: Yes (Hospitalization, Other)
  Sender: FDA-Public Use
  Company Number: FRWYE359325JUL06

PATIENT
  Age: 4 Year
  Sex: Male

DRUGS (3)
  1. TAZOCILLINE (PIPERACILLIN/TAZOBACTAM, INJECTION) [Suspect]
     Indication: LUNG INFECTION PSEUDOMONAL
     Dosage: SEE IMAGE
     Route: 042
     Dates: start: 20060718, end: 20060718
  2. TAZOCILLINE (PIPERACILLIN/TAZOBACTAM, INJECTION) [Suspect]
     Indication: LUNG INFECTION PSEUDOMONAL
     Dosage: SEE IMAGE
     Route: 042
     Dates: start: 20060722, end: 20060722
  3. TAZOCILLINE (PIPERACILLIN/TAZOBACTAM, INJECTION) [Suspect]
     Indication: LUNG INFECTION PSEUDOMONAL
     Dosage: SEE IMAGE
     Route: 042
     Dates: start: 20050701

REACTIONS (5)
  - ACCIDENTAL OVERDOSE [None]
  - CHILLS [None]
  - CYANOSIS [None]
  - MEDICATION ERROR [None]
  - PERIPHERAL COLDNESS [None]
